FAERS Safety Report 6667103-2 (Version None)
Quarter: 2010Q2

REPORT INFORMATION
  Report Type: 
  Country: None (occurrence: None)
  Receive Date: 20100405
  Receipt Date: 20100330
  Transmission Date: 20101027
  Serious: Yes (Hospitalization)
  Sender: FDA-Public Use
  Company Number: FR-BRISTOL-MYERS SQUIBB COMPANY-15041833

PATIENT
  Age: 49 Year
  Sex: Female

DRUGS (1)
  1. ORENCIA [Suspect]
     Route: 042
     Dates: start: 20090901, end: 20091220

REACTIONS (1)
  - DERMATITIS BULLOUS [None]
